FAERS Safety Report 7979778-6 (Version None)
Quarter: 2011Q4

REPORT INFORMATION
  Report Type: 
  Country: None (occurrence: None)
  Receive Date: 20111214
  Receipt Date: 20111210
  Transmission Date: 20120403
  Serious: Yes (Other)
  Sender: FDA-Public Use
  Company Number: US-ROCHE-1021187

PATIENT
  Sex: Female

DRUGS (2)
  1. RIBAVIRIN [Suspect]
     Indication: HEPATITIS C
     Route: 048
     Dates: start: 20111205
  2. PEGASYS [Suspect]
     Indication: HEPATITIS C
     Route: 058
     Dates: start: 20111205

REACTIONS (7)
  - MUSCULOSKELETAL PAIN [None]
  - HEPATOMEGALY [None]
  - WHITE BLOOD CELL COUNT DECREASED [None]
  - VOMITING [None]
  - NAUSEA [None]
  - PLEURISY [None]
  - PLATELET COUNT DECREASED [None]
